FAERS Safety Report 11752701 (Version 1)
Quarter: 2015Q4

REPORT INFORMATION
  Report Type: Spontaneous
  Country: US (occurrence: US)
  Receive Date: 20151119
  Receipt Date: 20151119
  Transmission Date: 20160304
  Serious: Yes (Other)
  Sender: FDA-Public Use
  Company Number: US-PAR PHARMACEUTICAL COMPANIES-2015SCPR014467

PATIENT

DRUGS (10)
  1. HYDROXYUREA. [Suspect]
     Active Substance: HYDROXYUREA
     Indication: PLATELET COUNT ABNORMAL
     Dosage: 2 DF, OD
     Route: 048
     Dates: start: 201102
  2. ATORVASTATIN [Concomitant]
     Active Substance: ATORVASTATIN
     Indication: PRODUCT USED FOR UNKNOWN INDICATION
     Dosage: UNK, OD
     Route: 048
  3. FUROSEMIDE. [Concomitant]
     Active Substance: FUROSEMIDE
     Indication: PRODUCT USED FOR UNKNOWN INDICATION
     Dosage: UNK, TID
     Route: 048
  4. HYDROXYUREA. [Suspect]
     Active Substance: HYDROXYUREA
     Dosage: 1 DF, OD
     Route: 048
     Dates: end: 201102
  5. SPIRONOLACT [Concomitant]
     Indication: PRODUCT USED FOR UNKNOWN INDICATION
     Dosage: UNK, TID
     Route: 048
  6. HYDROXYUREA. [Suspect]
     Active Substance: HYDROXYUREA
     Dosage: 1 DF, OD
     Route: 048
  7. NOVOLOG [Concomitant]
     Active Substance: INSULIN ASPART
     Indication: PRODUCT USED FOR UNKNOWN INDICATION
     Dosage: UNK, UNKNOWN
     Route: 065
  8. OMEPRAZOLE. [Concomitant]
     Active Substance: OMEPRAZOLE
     Indication: PRODUCT USED FOR UNKNOWN INDICATION
     Dosage: UNK, OD
     Route: 048
  9. LEVOTHYROXIN [Concomitant]
     Active Substance: LEVOTHYROXINE
     Indication: PRODUCT USED FOR UNKNOWN INDICATION
     Dosage: UNK, OD, EXCEPT SUNDAY
     Route: 048
  10. LANTUS [Concomitant]
     Active Substance: INSULIN GLARGINE
     Indication: PRODUCT USED FOR UNKNOWN INDICATION
     Dosage: 7 UNITS, OD
     Route: 048

REACTIONS (7)
  - Tongue movement disturbance [Recovered/Resolved]
  - Product quality issue [Unknown]
  - Dysphagia [Recovered/Resolved]
  - Stomatitis [Recovered/Resolved]
  - Wrong technique in product usage process [Unknown]
  - Osteoporosis [Not Recovered/Not Resolved]
  - Drug dispensing error [None]

NARRATIVE: CASE EVENT DATE: 201102
